FAERS Safety Report 8018838-0 (Version None)
Quarter: 2012Q1

REPORT INFORMATION
  Report Type: 
  Country: None (occurrence: None)
  Receive Date: 20120103
  Receipt Date: 20111227
  Transmission Date: 20120608
  Serious: Yes (Death, Other)
  Sender: FDA-Public Use
  Company Number: JP-PFIZER INC-2011315796

PATIENT
  Age: 79 Year
  Sex: Male
  Weight: 50 kg

DRUGS (3)
  1. PHYSIO 35 [Concomitant]
     Dosage: 500 ML/DAY
     Route: 041
     Dates: start: 20110808, end: 20110810
  2. ZOSYN [Suspect]
     Indication: PNEUMONIA
     Dosage: 9 G, UNK
     Route: 041
     Dates: start: 20110808, end: 20110810
  3. TPN ELECTROLYTES IN PLASTIC CONTAINER [Concomitant]
     Dosage: 1000 ML/DAY
     Route: 041
     Dates: start: 20110808, end: 20110810

REACTIONS (1)
  - RENAL FAILURE ACUTE [None]
